FAERS Safety Report 15251702 (Version 3)
Quarter: 2018Q3

REPORT INFORMATION
  Report Type: Report from Study
  Country: FR (occurrence: FR)
  Receive Date: 20180807
  Receipt Date: 20180824
  Transmission Date: 20181010
  Serious: Yes (Hospitalization, Other)
  Sender: FDA-Public Use
  Company Number: FR-SHIRE-FR201829571

PATIENT

DRUGS (11)
  1. VINCRISTINE [Suspect]
     Active Substance: VINCRISTINE
     Indication: ACUTE LYMPHOCYTIC LEUKAEMIA
     Dosage: 0.8 MG, 1X/DAY:QD
     Route: 042
     Dates: start: 20180629
  2. PERFALGAN [Concomitant]
     Active Substance: ACETAMINOPHEN
     Indication: PAIN
  3. LASILIX [Concomitant]
     Active Substance: FUROSEMIDE
     Indication: HYPOALBUMINAEMIA
  4. FORTUM [Concomitant]
     Active Substance: CEFTAZIDIME
     Indication: PYREXIA
  5. ALBUMIN [Concomitant]
     Active Substance: ALBUMIN HUMAN
     Indication: HYPOALBUMINAEMIA
     Route: 065
  6. VITAMIN K [Concomitant]
     Active Substance: PHYTONADIONE
     Indication: PROTHROMBIN TIME SHORTENED
  7. METHOTREXATE. [Suspect]
     Active Substance: METHOTREXATE
     Indication: ACUTE LYMPHOCYTIC LEUKAEMIA
     Dosage: 10 MG, 1X/DAY:QD (DAY 13)
     Route: 037
     Dates: start: 20180704
  8. DEXAMETHASONE. [Suspect]
     Active Substance: DEXAMETHASONE
     Indication: ACUTE LYMPHOCYTIC LEUKAEMIA
     Dosage: 3.5 MG, 1X/DAY:QD
     Route: 048
     Dates: start: 20180629, end: 20180725
  9. PEGASPARGASE [Suspect]
     Active Substance: PEGASPARGASE
     Indication: ACUTE LYMPHOCYTIC LEUKAEMIA
     Dosage: 1420 IU, UNK
     Route: 042
     Dates: start: 20180703
  10. LASILIX [Concomitant]
     Active Substance: FUROSEMIDE
     Indication: WEIGHT INCREASED
  11. NUBAIN [Concomitant]
     Active Substance: NALBUPHINE HYDROCHLORIDE
     Indication: PAIN

REACTIONS (1)
  - Capillary leak syndrome [Recovered/Resolved]

NARRATIVE: CASE EVENT DATE: 20180720
